FAERS Safety Report 9505787 (Version 1)
Quarter: 2013Q1

REPORT INFORMATION
  Report Type: Spontaneous
  Country: FR (occurrence: None)
  Receive Date: 20130225
  Receipt Date: 20130225
  Transmission Date: 20140127
  Serious: Yes (Hospitalization)
  Sender: FDA-Public Use
  Company Number: 2012-654

PATIENT
  Age: 44 Year
  Sex: Male

DRUGS (1)
  1. PRIALT [Suspect]
     Dosage: ONCE AN HR
     Route: 037

REACTIONS (3)
  - Dizziness [None]
  - Gait disturbance [None]
  - Urinary retention [None]
